FAERS Safety Report 16882824 (Version 1)
Quarter: 2019Q4

REPORT INFORMATION
  Report Type: Spontaneous
  Country: DE (occurrence: DE)
  Receive Date: 20191003
  Receipt Date: 20191003
  Transmission Date: 20200122
  Serious: Yes (Other)
  Sender: FDA-Public Use
  Company Number: DE-AUROBINDO-AUR-APL-2019-064232

PATIENT
  Age: 24 Year
  Sex: Female
  Weight: 55.5 kg

DRUGS (3)
  1. LEVETIRACETAM. [Suspect]
     Active Substance: LEVETIRACETAM
     Indication: JUVENILE MYOCLONIC EPILEPSY
     Dosage: 250 MILLIGRAM, TWO TIMES A DAY
     Route: 048
  2. FEMIBION [Concomitant]
     Indication: PROPHYLAXIS
     Dosage: 0.8 MILLIGRAM, ONCE A DAY
     Route: 048
     Dates: start: 20130614
  3. RHOPHYLAC [Concomitant]
     Active Substance: HUMAN RHO(D) IMMUNE GLOBULIN
     Indication: PROPHYLAXIS
     Dosage: 300 MICROGRAM, IN TOTAL, 300 ?G, ONE TIME DOSE
     Route: 030
     Dates: start: 20131209

REACTIONS (2)
  - Premature delivery [Unknown]
  - Maternal exposure during pregnancy [Unknown]

NARRATIVE: CASE EVENT DATE: 20130516
